FAERS Safety Report 6345760-8 (Version None)
Quarter: 2009Q3

REPORT INFORMATION
  Report Type: 
  Country: None (occurrence: None)
  Receive Date: 20090909
  Receipt Date: 20090908
  Transmission Date: 20100115
  Serious: Yes (Other)
  Sender: FDA-Public Use
  Company Number: GB-TEVA-208490ISR

PATIENT
  Age: 77 Year
  Sex: Male
  Weight: 72 kg

DRUGS (1)
  1. FLUCONAZOLE [Suspect]
     Indication: DERMATITIS
     Route: 048
     Dates: start: 20090527, end: 20090829

REACTIONS (1)
  - HYPONATRAEMIA [None]
